FAERS Safety Report 15990280 (Version 3)
Quarter: 2019Q1

REPORT INFORMATION
  Report Type: Report from Study
  Country: US (occurrence: US)
  Receive Date: 20190221
  Receipt Date: 20190329
  Transmission Date: 20190418
  Serious: Yes (Disabling, Other)
  Sender: FDA-Public Use
  Company Number: US-ROCHE-2267206

PATIENT
  Age: 26 Year
  Sex: Female

DRUGS (2)
  1. RITUXAN [Suspect]
     Active Substance: RITUXIMAB
     Indication: NEUROMYELITIS OPTICA SPECTRUM DISORDER
     Route: 042
  2. PLASMA-PLEX [Concomitant]
     Active Substance: PLASMA PROTEIN FRACTION (HUMAN)
     Indication: NEUROMYELITIS OPTICA SPECTRUM DISORDER
     Dosage: 7 TIMES
     Route: 065

REACTIONS (4)
  - Neuromyelitis optica spectrum disorder [Unknown]
  - Intentional product use issue [Unknown]
  - Off label use [Unknown]
  - Seizure [Not Recovered/Not Resolved]
